FAERS Safety Report 14363760 (Version 1)
Quarter: 2018Q1

REPORT INFORMATION
  Report Type: Spontaneous
  Country: US (occurrence: US)
  Receive Date: 20180108
  Receipt Date: 20180108
  Transmission Date: 20180509
  Serious: No
  Sender: FDA-Public Use
  Company Number: None

PATIENT

DRUGS (1)
  1. GADOLINIUM CONTRAST [Suspect]
     Active Substance: GADOLINIUM

REACTIONS (8)
  - Hypoacusis [None]
  - Motor dysfunction [None]
  - Thrombosis [None]
  - Skin exfoliation [None]
  - Neuralgia [None]
  - Sinus disorder [None]
  - Arthropathy [None]
  - Mobility decreased [None]
